FAERS Safety Report 7961036-7 (Version None)
Quarter: 2011Q4

REPORT INFORMATION
  Report Type: 
  Country: None (occurrence: None)
  Receive Date: 20111202
  Receipt Date: 20111121
  Transmission Date: 20120403
  Serious: Yes (Death)
  Sender: FDA-Public Use
  Company Number: 2011MA016905

PATIENT
  Sex: Male

DRUGS (1)
  1. PACLITAXEL [Suspect]

REACTIONS (2)
  - NEUTROPENIA [None]
  - BRONCHOPNEUMONIA [None]
